FAERS Safety Report 10882461 (Version 1)
Quarter: 2015Q1

REPORT INFORMATION
  Report Type: Spontaneous
  Country: US (occurrence: US)
  Receive Date: 20150303
  Receipt Date: 20150303
  Transmission Date: 20150721
  Serious: Yes (Other)
  Sender: FDA-Public Use
  Company Number: US-BAYER-2015-029029

PATIENT

DRUGS (6)
  1. BAYER GENUINE ASPIRIN [Interacting]
     Active Substance: ASPIRIN
     Indication: ANTICOAGULANT THERAPY
  2. BAYER GENUINE ASPIRIN [Suspect]
     Active Substance: ASPIRIN
     Indication: BLOOD CHOLESTEROL
     Dosage: 2 DF, QD
  3. BAYER GENUINE ASPIRIN [Interacting]
     Active Substance: ASPIRIN
     Indication: BLOOD PRESSURE
     Dosage: 1 DF, QD
  4. PLAVIX [Interacting]
     Active Substance: CLOPIDOGREL BISULFATE
     Indication: BLOOD CHOLESTEROL
     Dosage: UNK
  5. PLAVIX [Interacting]
     Active Substance: CLOPIDOGREL BISULFATE
     Indication: BLOOD PRESSURE
  6. PLAVIX [Interacting]
     Active Substance: CLOPIDOGREL BISULFATE
     Indication: ANTICOAGULANT THERAPY

REACTIONS (4)
  - Medication error [None]
  - Rash macular [None]
  - Labelled drug-drug interaction medication error [None]
  - Haemorrhage [None]
